FAERS Safety Report 9272529 (Version 3)
Quarter: 2013Q2

REPORT INFORMATION
  Report Type: Spontaneous
  Country: US (occurrence: US)
  Receive Date: 20130506
  Receipt Date: 20130614
  Transmission Date: 20140414
  Serious: Yes (Life-Threatening, Hospitalization, Other)
  Sender: FDA-Public Use
  Company Number: US-JNJFOC-20130416636

PATIENT
  Age: 24 Year
  Sex: Female
  Weight: 71.22 kg

DRUGS (15)
  1. REMICADE [Suspect]
     Indication: COLITIS ULCERATIVE
     Route: 042
     Dates: start: 20130403
  2. REMICADE [Suspect]
     Indication: COLITIS ULCERATIVE
     Route: 042
     Dates: start: 20130319
  3. REMICADE [Suspect]
     Indication: CROHN^S DISEASE
     Route: 042
     Dates: start: 20130403
  4. REMICADE [Suspect]
     Indication: CROHN^S DISEASE
     Route: 042
     Dates: start: 20130319
  5. BENADRYL [Concomitant]
     Indication: HYPERSENSITIVITY
     Route: 065
  6. PREDNISONE [Concomitant]
     Indication: COLITIS ULCERATIVE
     Dosage: TAPERING 10 MG EVERY WEEK
     Route: 048
     Dates: start: 20130403
  7. PREDNISONE [Concomitant]
     Indication: COLITIS ULCERATIVE
     Route: 048
     Dates: start: 20130110
  8. PREDNISONE [Concomitant]
     Indication: COLITIS ULCERATIVE
     Route: 048
     Dates: start: 20130329
  9. PEPCID [Concomitant]
     Indication: PREMEDICATION
     Route: 065
  10. TYLENOL [Concomitant]
     Indication: PREMEDICATION
     Route: 065
  11. ALLEGRA [Concomitant]
     Indication: PREMEDICATION
     Route: 065
  12. OMEPRAZOLE [Concomitant]
     Route: 065
  13. FOLIC ACID [Concomitant]
     Route: 065
  14. 6-MERCAPTOPURINE [Concomitant]
     Route: 065
     Dates: start: 20130305, end: 20130311
  15. SULFASALAZINE [Concomitant]
     Route: 065
     Dates: end: 20130226

REACTIONS (21)
  - Cardiogenic shock [Unknown]
  - Hypertension [Unknown]
  - Candida infection [Recovered/Resolved]
  - Acute respiratory failure [Unknown]
  - Hyperglycaemia [Unknown]
  - Anaemia of chronic disease [Recovering/Resolving]
  - Acute respiratory distress syndrome [Recovered/Resolved]
  - Pneumonia legionella [Recovered/Resolved]
  - Rash morbilliform [Recovered/Resolved]
  - Thrombocytopenia [Recovered/Resolved]
  - Deep vein thrombosis [Unknown]
  - Leukopenia [Unknown]
  - Septic shock [Unknown]
  - Iron deficiency anaemia [Recovering/Resolving]
  - Renal failure acute [Unknown]
  - Pericardial effusion [Unknown]
  - Cardiomyopathy [Unknown]
  - Critical illness polyneuropathy [Unknown]
  - Dysphagia [Unknown]
  - Hypophosphataemia [Unknown]
  - Hypomagnesaemia [Recovering/Resolving]
